FAERS Safety Report 16801552 (Version 1)
Quarter: 2019Q3

REPORT INFORMATION
  Report Type: Spontaneous
  Country: US (occurrence: US)
  Receive Date: 20190912
  Receipt Date: 20190912
  Transmission Date: 20191005
  Serious: Yes (Other)
  Sender: FDA-Public Use
  Company Number: US-GLAXOSMITHKLINE-US2019161942

PATIENT
  Age: 80 Year
  Sex: Male

DRUGS (2)
  1. CITRUCEL [Suspect]
     Active Substance: METHYLCELLULOSE (4000 MPA.S)
     Indication: CONSTIPATION
     Dosage: UNK, 1 IN THE MORNING, OR 2 AT LUNCHTIME AND 2 AT DINNER
  2. CITRUCEL [Suspect]
     Active Substance: METHYLCELLULOSE (4000 MPA.S)
     Indication: IRRITABLE BOWEL SYNDROME
     Dosage: UNK,4 TABLESPOON ON A GLASS OF WATER (MORNING) AND AFTER DINNER ABOUT 3 TABLESPOONS
     Dates: start: 201904

REACTIONS (5)
  - Hypokalaemia [Unknown]
  - Inappropriate schedule of product administration [Unknown]
  - Incorrect product administration duration [Unknown]
  - Off label use [Unknown]
  - Extra dose administered [Unknown]
